FAERS Safety Report 6335118-X (Version None)
Quarter: 2009Q3

REPORT INFORMATION
  Report Type: 
  Country: None (occurrence: None)
  Receive Date: 20090828
  Receipt Date: 20090828
  Transmission Date: 20100115
  Serious: Yes (Other)
  Sender: FDA-Public Use
  Company Number: None

PATIENT
  Age: 60 Year
  Sex: Female

DRUGS (1)
  1. BUPROPION HCL [Suspect]
     Indication: DEPRESSION
     Dosage: 300MG QD PO STARTED MED 2006, NOT SURE WHEN STARTED GENERIC
     Route: 048
     Dates: start: 20060101

REACTIONS (3)
  - LIP SWELLING [None]
  - PRODUCT QUALITY ISSUE [None]
  - RASH [None]
